FAERS Safety Report 6376422-9 (Version None)
Quarter: 2009Q3

REPORT INFORMATION
  Report Type: 
  Country: None (occurrence: None)
  Receive Date: 20090925
  Receipt Date: 20090922
  Transmission Date: 20100115
  Serious: No
  Sender: FDA-Public Use
  Company Number: US-JNJFOC-20090906750

PATIENT
  Sex: Female
  Weight: 68.04 kg

DRUGS (2)
  1. FENTANYL TRANSDERMAL SYSTEM [Suspect]
     Indication: ARTHRALGIA
     Route: 062
  2. UNKNOWN MEDICATION [Concomitant]

REACTIONS (1)
  - INCORRECT DRUG ADMINISTRATION DURATION [None]
